FAERS Safety Report 6422448-6 (Version None)
Quarter: 2009Q4

REPORT INFORMATION
  Report Type: 
  Country: None (occurrence: None)
  Receive Date: 20091030
  Receipt Date: 20091022
  Transmission Date: 20100525
  Serious: Yes (Other)
  Sender: FDA-Public Use
  Company Number: US-ABBOTT-09P-163-0605834-00

PATIENT
  Age: 6 Day
  Sex: Female

DRUGS (3)
  1. LOPINAVIR AND RITONAVIR [Suspect]
     Indication: DRUG EXPOSURE DURING PREGNANCY
     Route: 064
  2. LOPINAVIR AND RITONAVIR [Suspect]
     Indication: PROPHYLAXIS AGAINST HIV INFECTION
     Dosage: 300/75 MG/M**2/DOSE EVERY 12 HOURS
     Route: 048
  3. ZIDOVUDINE [Concomitant]
     Indication: DRUG USE FOR UNKNOWN INDICATION
     Route: 048

REACTIONS (2)
  - BRADYCARDIA [None]
  - DRUG EXPOSURE DURING PREGNANCY [None]
